FAERS Safety Report 22351109 (Version 2)
Quarter: 2023Q2

REPORT INFORMATION
  Report Type: Spontaneous
  Country: SI (occurrence: SI)
  Receive Date: 20230522
  Receipt Date: 20230608
  Transmission Date: 20230722
  Serious: Yes (Life-Threatening, Hospitalization)
  Sender: FDA-Public Use
  Company Number: SI-JNJFOC-20230546918

PATIENT
  Age: 23 Year
  Sex: Female

DRUGS (42)
  1. HALOPERIDOL [Suspect]
     Active Substance: HALOPERIDOL
     Indication: Borderline personality disorder
     Dosage: THERE IS NO INFORMATION ON THE DOSAGE AND METHOD OF ADMINISTRATION
     Route: 065
  2. HALOPERIDOL [Suspect]
     Active Substance: HALOPERIDOL
     Indication: Anxiety
  3. HALOPERIDOL [Suspect]
     Active Substance: HALOPERIDOL
     Indication: Depression
  4. HALOPERIDOL [Suspect]
     Active Substance: HALOPERIDOL
     Indication: Bipolar disorder
  5. ARIPIPRAZOLE [Suspect]
     Active Substance: ARIPIPRAZOLE
     Indication: Borderline personality disorder
     Dosage: THE PRESCRIBED DOSE WAS 0,5 TABLET PER DAY, DURING THE SUICIDE ATTEMPT THE PATIENT TOOK A LARGER NUM
     Route: 048
     Dates: start: 20230330, end: 20230330
  6. DIAZEPAM [Suspect]
     Active Substance: DIAZEPAM
     Indication: Bipolar disorder
     Dosage: 5-10 MG/DAY
     Route: 048
  7. DIAZEPAM [Suspect]
     Active Substance: DIAZEPAM
     Indication: Borderline personality disorder
  8. DIAZEPAM [Suspect]
     Active Substance: DIAZEPAM
     Indication: Depression
  9. DIAZEPAM [Suspect]
     Active Substance: DIAZEPAM
     Indication: Anxiety
  10. VORTIOXETINE HYDROBROMIDE [Suspect]
     Active Substance: VORTIOXETINE HYDROBROMIDE
     Indication: Borderline personality disorder
     Dosage: 1 TBL IN THE MORNING
     Route: 048
  11. VORTIOXETINE HYDROBROMIDE [Suspect]
     Active Substance: VORTIOXETINE HYDROBROMIDE
     Indication: Bipolar disorder
  12. VORTIOXETINE HYDROBROMIDE [Suspect]
     Active Substance: VORTIOXETINE HYDROBROMIDE
     Indication: Depression
  13. VORTIOXETINE HYDROBROMIDE [Suspect]
     Active Substance: VORTIOXETINE HYDROBROMIDE
     Indication: Anxiety
  14. LAMOTRIGINE [Suspect]
     Active Substance: LAMOTRIGINE
     Indication: Depression
     Dosage: 1 TBL IN THE EVENING
     Route: 048
  15. LAMOTRIGINE [Suspect]
     Active Substance: LAMOTRIGINE
     Indication: Anxiety
  16. LAMOTRIGINE [Suspect]
     Active Substance: LAMOTRIGINE
     Indication: Bipolar disorder
  17. LAMOTRIGINE [Suspect]
     Active Substance: LAMOTRIGINE
     Indication: Borderline personality disorder
  18. PAROXETINE HYDROCHLORIDE [Suspect]
     Active Substance: PAROXETINE HYDROCHLORIDE
     Indication: Borderline personality disorder
     Dosage: THE PRESCRIBED DOSE WAS 0,5-1 TABLET PER DAY, DURING THE SUICIDE ATTEMPT DISORDER) THE PATIENT TOOK
     Route: 065
     Dates: start: 20230330, end: 20230414
  19. PAROXETINE HYDROCHLORIDE [Suspect]
     Active Substance: PAROXETINE HYDROCHLORIDE
     Indication: Bipolar disorder
  20. PAROXETINE HYDROCHLORIDE [Suspect]
     Active Substance: PAROXETINE HYDROCHLORIDE
     Indication: Depression
  21. PAROXETINE HYDROCHLORIDE [Suspect]
     Active Substance: PAROXETINE HYDROCHLORIDE
     Indication: Anxiety
  22. QUETIAPINE FUMARATE [Suspect]
     Active Substance: QUETIAPINE FUMARATE
     Indication: Borderline personality disorder
     Dosage: 1 TBL AT 17H AT 5PM
     Route: 048
  23. QUETIAPINE FUMARATE [Suspect]
     Active Substance: QUETIAPINE FUMARATE
     Indication: Bipolar disorder
  24. QUETIAPINE FUMARATE [Suspect]
     Active Substance: QUETIAPINE FUMARATE
     Indication: Depression
  25. QUETIAPINE FUMARATE [Suspect]
     Active Substance: QUETIAPINE FUMARATE
     Indication: Anxiety
  26. VALPROIC ACID [Suspect]
     Active Substance: VALPROIC ACID
     Indication: Borderline personality disorder
     Dosage: 2 TBL IN THE EVENING
     Route: 048
  27. VALPROIC ACID [Suspect]
     Active Substance: VALPROIC ACID
     Indication: Bipolar disorder
  28. VALPROIC ACID [Suspect]
     Active Substance: VALPROIC ACID
     Indication: Depression
  29. VALPROIC ACID [Suspect]
     Active Substance: VALPROIC ACID
     Indication: Anxiety
  30. TRAZODONE HYDROCHLORIDE [Suspect]
     Active Substance: TRAZODONE HYDROCHLORIDE
     Indication: Borderline personality disorder
     Dosage: 1/3 TBL IN THE EVENING
     Route: 048
  31. TRAZODONE HYDROCHLORIDE [Suspect]
     Active Substance: TRAZODONE HYDROCHLORIDE
     Indication: Bipolar disorder
  32. TRAZODONE HYDROCHLORIDE [Suspect]
     Active Substance: TRAZODONE HYDROCHLORIDE
     Indication: Depression
  33. TRAZODONE HYDROCHLORIDE [Suspect]
     Active Substance: TRAZODONE HYDROCHLORIDE
     Indication: Anxiety
  34. LACTULOSE [Suspect]
     Active Substance: LACTULOSE
     Indication: Borderline personality disorder
     Dosage: 1-2 SPOON IF NECESSARY
     Route: 065
     Dates: start: 20230330, end: 20230414
  35. LACTULOSE [Suspect]
     Active Substance: LACTULOSE
     Indication: Bipolar disorder
  36. LACTULOSE [Suspect]
     Active Substance: LACTULOSE
     Indication: Depression
  37. LACTULOSE [Suspect]
     Active Substance: LACTULOSE
     Indication: Anxiety
  38. BUPROPION HYDROCHLORIDE [Suspect]
     Active Substance: BUPROPION HYDROCHLORIDE
     Indication: Borderline personality disorder
     Dosage: THE PRESCRIBED DOSE WAS 0,5-1 TABLET PER DAY, DURING THE SUICIDE ATTEMPT DISORDER) THE PATIENT TOOK
     Route: 048
     Dates: start: 20230330, end: 20230330
  39. BUPROPION HYDROCHLORIDE [Suspect]
     Active Substance: BUPROPION HYDROCHLORIDE
     Indication: Bipolar disorder
  40. BUPROPION HYDROCHLORIDE [Suspect]
     Active Substance: BUPROPION HYDROCHLORIDE
     Indication: Depression
  41. BUPROPION HYDROCHLORIDE [Suspect]
     Active Substance: BUPROPION HYDROCHLORIDE
     Indication: Anxiety
  42. NAPROXEN SODIUM [Concomitant]
     Active Substance: NAPROXEN SODIUM
     Indication: Pain
     Route: 048

REACTIONS (1)
  - Stevens-Johnson syndrome [Recovered/Resolved]
